FAERS Safety Report 5069637-3 (Version None)
Quarter: 2006Q3

REPORT INFORMATION
  Report Type: 
  Country: None (occurrence: None)
  Receive Date: 20060803
  Receipt Date: 20050818
  Transmission Date: 20061208
  Serious: No
  Sender: FDA-Public Use
  Company Number: US-BRISTOL-MYERS SQUIBB COMPANY-13085709

PATIENT

DRUGS (1)
  1. MAXIPIME [Suspect]
     Route: 042

REACTIONS (1)
  - INJECTION SITE REACTION [None]
